FAERS Safety Report 7006221-6 (Version None)
Quarter: 2010Q3

REPORT INFORMATION
  Report Type: 
  Country: None (occurrence: None)
  Receive Date: 20100921
  Receipt Date: 20100907
  Transmission Date: 20110219
  Serious: No
  Sender: FDA-Public Use
  Company Number: US-PFIZER INC-2010112955

PATIENT
  Sex: Female

DRUGS (2)
  1. DIFLUCAN [Suspect]
     Indication: FUNGAL INFECTION
     Dosage: UNK
  2. PREMARIN [Suspect]
     Indication: FUNGAL INFECTION
     Dosage: UNK

REACTIONS (2)
  - DRUG INEFFECTIVE [None]
  - FUNGAL INFECTION [None]
